FAERS Safety Report 4800054-4 (Version None)
Quarter: 2005Q4

REPORT INFORMATION
  Report Type: 
  Country: None (occurrence: None)
  Receive Date: 20051013
  Receipt Date: 20051013
  Transmission Date: 20060501
  Serious: Yes (Life-Threatening)
  Sender: FDA-Public Use
  Company Number: None

PATIENT
  Sex: Male
  Weight: 84 kg

DRUGS (3)
  1. FLUDARABINE [Suspect]
     Indication: ACUTE LEUKAEMIA
     Dosage: 60 MG DAILY IV DRIP
     Route: 041
     Dates: start: 20050831, end: 20050904
  2. MELPHALAN 140 MG/M2 [Suspect]
     Indication: ACUTE LEUKAEMIA
     Dosage: 280 MG ONCE IV DRIP
     Route: 041
     Dates: start: 20050905, end: 20050905
  3. CAMPATH [Concomitant]

REACTIONS (10)
  - ATRIAL FIBRILLATION [None]
  - ATRIAL FLUTTER [None]
  - ATRIOVENTRICULAR BLOCK [None]
  - CHEST DISCOMFORT [None]
  - HYPERLIPIDAEMIA [None]
  - HYPERTENSION [None]
  - HYPOTENSION [None]
  - NAUSEA [None]
  - STEM CELL TRANSPLANT [None]
  - THROMBOCYTOPENIA [None]
